FAERS Safety Report 13036153 (Version 1)
Quarter: 2016Q4

REPORT INFORMATION
  Report Type: Spontaneous
  Country: US (occurrence: US)
  Receive Date: 20161216
  Receipt Date: 20161216
  Transmission Date: 20170207
  Serious: No
  Sender: FDA-Public Use
  Company Number: US-PERRIGO-16US014028

PATIENT
  Age: 66 Year
  Sex: Female
  Weight: 50.79 kg

DRUGS (3)
  1. THYROID THERAPY [Concomitant]
     Active Substance: UNSPECIFIED INGREDIENT
     Indication: THYROID DISORDER
     Dosage: UNK
     Route: 065
     Dates: start: 2014
  2. BACITRACIN. [Suspect]
     Active Substance: BACITRACIN
     Indication: INFECTION PROPHYLAXIS
     Dosage: TINY AMOUNT, QID TO EYELID
     Route: 047
     Dates: start: 201601, end: 201601
  3. BACITRACIN. [Suspect]
     Active Substance: BACITRACIN
     Indication: ACCIDENTAL EXPOSURE TO PRODUCT
     Dosage: TINY AMOUNT, QID TO EYELID
     Route: 047
     Dates: start: 20160225, end: 20160301

REACTIONS (4)
  - Off label use [Recovered/Resolved]
  - Wrong technique in product usage process [Recovered/Resolved]
  - Accidental exposure to product [Recovered/Resolved]
  - Vision blurred [Not Recovered/Not Resolved]

NARRATIVE: CASE EVENT DATE: 201601
